FAERS Safety Report 22243100 (Version 1)
Quarter: 2023Q2

REPORT INFORMATION
  Report Type: Spontaneous
  Country: US (occurrence: US)
  Receive Date: 20230424
  Receipt Date: 20230424
  Transmission Date: 20230722
  Serious: No
  Sender: FDA-Public Use
  Company Number: US-PFIZER INC-202300162128

PATIENT
  Age: 66 Year
  Sex: Female
  Weight: 88.9 kg

DRUGS (5)
  1. PAXLOVID [Suspect]
     Active Substance: NIRMATRELVIR\RITONAVIR
     Indication: COVID-19 treatment
     Dosage: [PF-07321332 300 MG]/[RITONAVIR 100 MG]; 2X/DAY
     Dates: start: 20230418
  2. MYCOPHENOLIC ACID [Suspect]
     Active Substance: MYCOPHENOLIC ACID
     Indication: Autoimmune disorder
     Dosage: 500 MG, 2X/DAY
  3. MYCOPHENOLIC ACID [Suspect]
     Active Substance: MYCOPHENOLIC ACID
     Indication: Urticaria
     Dosage: 500 MG, DAILY
  4. PREDNISONE [Suspect]
     Active Substance: PREDNISONE
     Indication: Urticaria
     Dosage: 2.5 MG, 1X/DAY
     Route: 048
  5. INSULIN NOS [Concomitant]
     Active Substance: INSULIN NOS

REACTIONS (8)
  - Renal pain [Unknown]
  - Rash [Unknown]
  - Herpes zoster [Unknown]
  - Back pain [Recovering/Resolving]
  - Pruritus [Not Recovered/Not Resolved]
  - Lip swelling [Unknown]
  - Feeling abnormal [Unknown]
  - Erythema [Recovering/Resolving]

NARRATIVE: CASE EVENT DATE: 20230418
